FAERS Safety Report 20008740 (Version 3)
Quarter: 2021Q4

REPORT INFORMATION
  Report Type: Report from Study
  Country: BR (occurrence: None)
  Receive Date: 20211029
  Receipt Date: 20211115
  Transmission Date: 20220304
  Serious: Yes (Death, Hospitalization)
  Sender: FDA-Public Use
  Company Number: BR-ROCHE-2906794

PATIENT
  Age: 29 Year
  Sex: Male
  Weight: 86 kg

DRUGS (11)
  1. ADO-TRASTUZUMAB EMTANSINE [Suspect]
     Active Substance: ADO-TRASTUZUMAB EMTANSINE
     Indication: Neoplasm
     Dosage: DOSE LAST STUDY DRUG ADMIN PRIOR AE IS 309.6 MG: 01-SEP-2021?DOSE LAST STUDY DRUG ADMIN PRIOR SAE IS
     Route: 042
  2. CLINDAMYCIN [Concomitant]
     Active Substance: CLINDAMYCIN
     Indication: Septic shock
     Route: 042
     Dates: start: 20210905, end: 20210908
  3. NOREPINEPHRINE [Concomitant]
     Active Substance: NOREPINEPHRINE
     Indication: Septic shock
     Route: 065
     Dates: start: 20210905, end: 20211004
  4. PIPERACILLIN AND TAZOBACTAM [Concomitant]
     Active Substance: PIPERACILLIN SODIUM\TAZOBACTAM SODIUM
     Indication: Septic shock
     Route: 042
     Dates: start: 20210915, end: 20210922
  5. MEROPENEM [Concomitant]
     Active Substance: MEROPENEM
     Indication: Septic shock
     Dosage: 1000 MG
     Route: 042
     Dates: start: 20210922, end: 20211005
  6. LINEZOLID [Concomitant]
     Active Substance: LINEZOLID
     Indication: Septic shock
     Dosage: 600 MG
     Route: 042
     Dates: start: 20210922, end: 20210928
  7. VANCOMYCIN [Concomitant]
     Active Substance: VANCOMYCIN
     Indication: Septic shock
     Dosage: 1000 MG
     Route: 042
     Dates: start: 20210929, end: 20211005
  8. HYDROCORTISONE [Concomitant]
     Active Substance: HYDROCORTISONE
     Indication: Septic shock
     Route: 042
     Dates: start: 20210929, end: 20211005
  9. DEXMEDETOMIDINE [Concomitant]
     Active Substance: DEXMEDETOMIDINE
     Indication: Sedation
     Route: 065
     Dates: start: 20210906, end: 20211005
  10. REMIFENTANIL [Concomitant]
     Active Substance: REMIFENTANIL
     Indication: Sedation
     Route: 065
     Dates: start: 20210929, end: 20211005
  11. CISATRACURIUM [Concomitant]
     Active Substance: CISATRACURIUM
     Indication: Sedation
     Route: 065
     Dates: start: 20210929, end: 20211005

REACTIONS (1)
  - Drug-induced liver injury [Fatal]

NARRATIVE: CASE EVENT DATE: 20210904
